FAERS Safety Report 9319877 (Version 1)
Quarter: 2013Q2

REPORT INFORMATION
  Report Type: Spontaneous
  Country: US (occurrence: US)
  Receive Date: 20130530
  Receipt Date: 20130530
  Transmission Date: 20140414
  Serious: Yes (Other)
  Sender: FDA-Public Use
  Company Number: US-TEVA-408336USA

PATIENT
  Sex: Female

DRUGS (1)
  1. SOTALOL [Suspect]
     Indication: ATRIAL TACHYCARDIA
     Dosage: 160 MILLIGRAM DAILY;

REACTIONS (3)
  - Heart rate increased [Unknown]
  - Fatigue [Unknown]
  - Drug ineffective [Unknown]
